FAERS Safety Report 5844373-1 (Version None)
Quarter: 2008Q3

REPORT INFORMATION
  Report Type: 
  Country: None (occurrence: None)
  Receive Date: 20080808
  Receipt Date: 20080723
  Transmission Date: 20090109
  Serious: Yes (Life-Threatening, Hospitalization)
  Sender: FDA-Public Use
  Company Number: 2007BI013932

PATIENT
  Age: 22 Year
  Sex: Male

DRUGS (3)
  1. AVONEX [Suspect]
     Indication: MULTIPLE SCLEROSIS
     Dosage: 30 UG; QW; IM
     Route: 030
     Dates: start: 20070531, end: 20070627
  2. SYMBICORT [Concomitant]
  3. BEROTEC [Concomitant]

REACTIONS (26)
  - ACCIDENT [None]
  - ASTHMA [None]
  - FALL [None]
  - FOOT FRACTURE [None]
  - FRACTURED SACRUM [None]
  - GAIT DISTURBANCE [None]
  - HAEMORRHAGIC ANAEMIA [None]
  - INTRA-ABDOMINAL HAEMORRHAGE [None]
  - LOWER LIMB FRACTURE [None]
  - LUMBAR VERTEBRAL FRACTURE [None]
  - LUNG DISORDER [None]
  - MELAENA [None]
  - MULTIPLE INJURIES [None]
  - PELVIC FRACTURE [None]
  - PLEURAL HAEMORRHAGE [None]
  - PNEUMOTHORAX [None]
  - POST PROCEDURAL HAEMATOMA [None]
  - PSYCHOTIC DISORDER [None]
  - RADIUS FRACTURE [None]
  - RETROPERITONEAL HAEMORRHAGE [None]
  - SPINAL DISORDER [None]
  - THORACIC VERTEBRAL FRACTURE [None]
  - ULNA FRACTURE [None]
  - UPPER LIMB FRACTURE [None]
  - URINARY RETENTION [None]
  - URINARY TRACT INFECTION [None]
